FAERS Safety Report 10184912 (Version 2)
Quarter: 2014Q2

REPORT INFORMATION
  Report Type: Spontaneous
  Country: US (occurrence: US)
  Receive Date: 20140521
  Receipt Date: 20140521
  Transmission Date: 20141212
  Serious: Yes (Hospitalization)
  Sender: FDA-Public Use
  Company Number: US-UCBSA-119272

PATIENT
  Age: 40 Year
  Sex: Female
  Weight: 55.8 kg

DRUGS (3)
  1. CIMZIA [Suspect]
     Indication: CROHN^S DISEASE
     Route: 058
     Dates: start: 20121022
  2. PERCOCET [Concomitant]
     Dosage: 5/325 MG, 2 PILLS UPTO 4 TIMES A DAY
  3. AMBIEN [Concomitant]
     Dosage: AT BEDTIME
     Route: 048

REACTIONS (2)
  - Wound dehiscence [Not Recovered/Not Resolved]
  - Inappropriate schedule of drug administration [Not Recovered/Not Resolved]
